FAERS Safety Report 8910648 (Version 6)
Quarter: 2013Q1

REPORT INFORMATION
  Report Type: Spontaneous
  Country: DE (occurrence: None)
  Receive Date: 20121108
  Receipt Date: 20130102
  Transmission Date: 20140127
  Serious: Yes (Death, Hospitalization, Other)
  Sender: FDA-Public Use
  Company Number: ACO_32661_2012

PATIENT
  Age: 60 Year
  Sex: Male

DRUGS (3)
  1. FAMPYRA [Suspect]
     Indication: MULTIPLE SCLEROSIS
     Route: 048
     Dates: start: 20120803, end: 20120819
  2. VITAMIN B12 [Concomitant]
  3. RAMIPRIL [Concomitant]

REACTIONS (16)
  - Pneumonia [None]
  - Nausea [None]
  - Vomiting [None]
  - General physical health deterioration [None]
  - Chest pain [None]
  - Blood pressure systolic increased [None]
  - Gastrooesophageal reflux disease [None]
  - Haemorrhagic erosive gastritis [None]
  - Erosive duodenitis [None]
  - Aortic arteriosclerosis [None]
  - Spinal osteoarthritis [None]
  - Gastrointestinal disorder [None]
  - Cardio-respiratory arrest [None]
  - Ventricular fibrillation [None]
  - Bradycardia [None]
  - Septic shock [None]
